FAERS Safety Report 18331398 (Version 3)
Quarter: 2020Q4

REPORT INFORMATION
  Report Type: Spontaneous
  Country: US (occurrence: US)
  Receive Date: 20200930
  Receipt Date: 20201102
  Transmission Date: 20210113
  Serious: Yes (Death, Hospitalization, Other)
  Sender: FDA-Public Use
  Company Number: US-ASTRAZENECA-2020SF25212

PATIENT
  Age: 21431 Day
  Sex: Female
  Weight: 120 kg

DRUGS (43)
  1. ACETAMINOPHEN. [Concomitant]
     Active Substance: ACETAMINOPHEN
  2. ONDANSETRON [Concomitant]
     Active Substance: ONDANSETRON
  3. ZOFRAN [Concomitant]
     Active Substance: ONDANSETRON HYDROCHLORIDE
  4. FERROUS SULFATE. [Concomitant]
     Active Substance: FERROUS SULFATE
  5. ENOXAPARIN [Concomitant]
     Active Substance: ENOXAPARIN
  6. DEXTROSE. [Concomitant]
     Active Substance: DEXTROSE
  7. VANCOMYCIN [Concomitant]
     Active Substance: VANCOMYCIN
  8. LOPERAMIDE [Concomitant]
     Active Substance: LOPERAMIDE
     Dates: start: 20121127
  9. FARXIGA [Suspect]
     Active Substance: DAPAGLIFLOZIN PROPANEDIOL
     Indication: TYPE 2 DIABETES MELLITUS
     Route: 048
     Dates: start: 20150924, end: 201810
  10. ALEVE [Concomitant]
     Active Substance: NAPROXEN SODIUM
  11. TORSEMIDE. [Concomitant]
     Active Substance: TORSEMIDE
  12. ESIDRIX [Concomitant]
     Active Substance: HYDROCHLOROTHIAZIDE
     Dates: start: 20121128
  13. CLORPACTIN [Concomitant]
  14. FARXIGA [Suspect]
     Active Substance: DAPAGLIFLOZIN PROPANEDIOL
     Indication: WEIGHT DECREASED
     Route: 048
     Dates: start: 20150924, end: 201810
  15. GLIMEPIRIDE. [Concomitant]
     Active Substance: GLIMEPIRIDE
  16. LEVOTHYROXINE. [Concomitant]
     Active Substance: LEVOTHYROXINE
  17. AZITHROMYCIN ANHYDROUS. [Concomitant]
     Active Substance: AZITHROMYCIN ANHYDROUS
  18. PIPERACILLIN. [Concomitant]
     Active Substance: PIPERACILLIN SODIUM
  19. LEVAQUIN [Concomitant]
     Active Substance: LEVOFLOXACIN
  20. NOVOLOG [Concomitant]
     Active Substance: INSULIN ASPART
  21. AMLODIPINE [Concomitant]
     Active Substance: AMLODIPINE BESYLATE
  22. LEVEMIR [Concomitant]
     Active Substance: INSULIN DETEMIR
  23. LOVENOX [Concomitant]
     Active Substance: ENOXAPARIN SODIUM
  24. NYSTATIN. [Concomitant]
     Active Substance: NYSTATIN
  25. IMODIUM [Concomitant]
     Active Substance: LOPERAMIDE HYDROCHLORIDE
     Dates: start: 20121127
  26. PRAVASTATIN. [Concomitant]
     Active Substance: PRAVASTATIN
  27. LOMOTIL [Concomitant]
     Active Substance: ATROPINE SULFATE\DIPHENOXYLATE HYDROCHLORIDE
  28. PRAVACHOL [Concomitant]
     Active Substance: PRAVASTATIN SODIUM
     Dates: start: 20121128
  29. MILK OF MAGNESIA [Concomitant]
     Active Substance: MAGNESIUM HYDROXIDE
     Dates: start: 20121127
  30. FARXIGA [Suspect]
     Active Substance: DAPAGLIFLOZIN PROPANEDIOL
     Indication: BLOOD PRESSURE DECREASED
     Route: 048
     Dates: start: 20150924, end: 201810
  31. LISINOPRIL/HCTZ [Concomitant]
     Active Substance: HYDROCHLOROTHIAZIDE\LISINOPRIL
  32. ASPIRIN. [Concomitant]
     Active Substance: ASPIRIN
  33. PREDNISONE. [Concomitant]
     Active Substance: PREDNISONE
  34. SODIUM CHLORIDE. [Concomitant]
     Active Substance: SODIUM CHLORIDE
  35. ROBITUSSIN (GUAIFENESIN) [Concomitant]
     Active Substance: GUAIFENESIN
  36. PANTOPRAZOLE [Concomitant]
     Active Substance: PANTOPRAZOLE
  37. GLUCAGON. [Concomitant]
     Active Substance: GLUCAGON
  38. NORCO [Concomitant]
     Active Substance: ACETAMINOPHEN\HYDROCODONE BITARTRATE
  39. METOPROLOL. [Concomitant]
     Active Substance: METOPROLOL
  40. MAALOX ANTACID [Concomitant]
     Active Substance: ALUMINUM HYDROXIDE\DIMETHICONE\MAGNESIUM HYDROXIDE
     Dates: start: 20121127
  41. BENADRYL [Concomitant]
     Active Substance: DIPHENHYDRAMINE HYDROCHLORIDE
     Dates: start: 20121127
  42. BISACODYL. [Concomitant]
     Active Substance: BISACODYL
     Dates: start: 20121127
  43. GUAIFENESIN. [Concomitant]
     Active Substance: GUAIFENESIN
     Dates: start: 20121127

REACTIONS (13)
  - Sepsis [Unknown]
  - Chronic kidney disease [Fatal]
  - Renal impairment [Unknown]
  - Subcutaneous abscess [Unknown]
  - Acute respiratory failure [Unknown]
  - Blood loss anaemia [Unknown]
  - Acute kidney injury [Unknown]
  - Renal failure [Unknown]
  - Abscess limb [Unknown]
  - Urinary tract infection [Fatal]
  - Cerebrovascular accident [Fatal]
  - Fournier^s gangrene [Unknown]
  - Nephrogenic anaemia [Unknown]

NARRATIVE: CASE EVENT DATE: 20160831
